FAERS Safety Report 6208453-3 (Version None)
Quarter: 2009Q2

REPORT INFORMATION
  Report Type: 
  Country: None (occurrence: None)
  Receive Date: 20090522
  Receipt Date: 20090129
  Transmission Date: 20091009
  Serious: No
  Sender: FDA-Public Use
  Company Number: 8042297

PATIENT
  Sex: Male
  Weight: 120.4 kg

DRUGS (19)
  1. CIMZIA [Suspect]
     Indication: CROHN'S DISEASE
     Dosage: 400 MG SC
     Route: 058
     Dates: start: 20060501
  2. CALCIUM [Concomitant]
  3. MULTI-VITAMIN [Concomitant]
  4. BENADRYL [Concomitant]
  5. ACTONEL [Concomitant]
  6. LASIX [Concomitant]
  7. IRON [Concomitant]
  8. QUESTRAN [Concomitant]
  9. ENTOCORT EC [Concomitant]
  10. LOVAZA [Concomitant]
  11. VITAMIN D [Concomitant]
  12. KLONOPIN [Concomitant]
  13. ALBUTEROL [Concomitant]
  14. NORVASC [Concomitant]
  15. TYLENOL (CAPLET) [Concomitant]
  16. NEURONTIN [Concomitant]
  17. PROTONIX [Concomitant]
  18. POTASSIUM CHLORIDE [Concomitant]
  19. ADVAIR HFA [Concomitant]

REACTIONS (1)
  - FATIGUE [None]
